FAERS Safety Report 9207998 (Version 1)
Quarter: 2013Q2

REPORT INFORMATION
  Report Type: Spontaneous
  Country: GB (occurrence: GB)
  Receive Date: 20130403
  Receipt Date: 20130403
  Transmission Date: 20140414
  Serious: Yes (Hospitalization)
  Sender: FDA-Public Use
  Company Number: GB-TEVA-395012ISR

PATIENT
  Age: 37 Year
  Sex: Male

DRUGS (3)
  1. CISPLATIN [Suspect]
     Indication: GERM CELL CANCER METASTATIC
     Route: 065
  2. BLEOMYCIN [Concomitant]
     Indication: GERM CELL CANCER METASTATIC
     Route: 065
  3. ETOPOSIDE [Concomitant]
     Indication: GERM CELL CANCER METASTATIC
     Route: 065

REACTIONS (2)
  - Carotid artery dissection [Recovered/Resolved]
  - Ischaemic stroke [Recovered/Resolved]
